FAERS Safety Report 20611416 (Version 1)
Quarter: 2022Q1

REPORT INFORMATION
  Report Type: Report from Study
  Country: FR (occurrence: None)
  Receive Date: 20220318
  Receipt Date: 20220318
  Transmission Date: 20220423
  Serious: Yes (Life-Threatening)
  Sender: FDA-Public Use
  Company Number: 2022A117246

PATIENT
  Age: 57 Year
  Sex: Male
  Weight: 82 kg

DRUGS (5)
  1. EVUSHELD [Suspect]
     Active Substance: CILGAVIMAB\TIXAGEVIMAB
     Indication: COVID-19
     Dosage: 600.0MG ONCE/SINGLE ADMINISTRATION
     Route: 030
     Dates: start: 20220204
  2. KARDEGIC [Concomitant]
     Active Substance: ASPIRIN DL-LYSINE
  3. ATORVASTATIN [Concomitant]
     Active Substance: ATORVASTATIN
  4. CEFOTAXIME [Concomitant]
     Active Substance: CEFOTAXIME SODIUM
  5. PIPERACILLIN SODIUM\TAZOBACTAM SODIUM [Concomitant]
     Active Substance: PIPERACILLIN SODIUM\TAZOBACTAM SODIUM

REACTIONS (1)
  - Encephalopathy [Recovering/Resolving]

NARRATIVE: CASE EVENT DATE: 20220217
